FAERS Safety Report 22889623 (Version 3)
Quarter: 2023Q4

REPORT INFORMATION
  Report Type: Report from Study
  Country: US (occurrence: US)
  Receive Date: 20230831
  Receipt Date: 20231227
  Transmission Date: 20240110
  Serious: Yes (Hospitalization, Other)
  Sender: FDA-Public Use
  Company Number: US-TAKEDA-2023TUS038954

PATIENT
  Age: 71 Year
  Sex: Male

DRUGS (4)
  1. IXAZOMIB [Suspect]
     Active Substance: IXAZOMIB
     Indication: Plasma cell myeloma
     Dosage: 3 MILLIGRAM
     Route: 048
     Dates: start: 202102
  2. IXAZOMIB [Suspect]
     Active Substance: IXAZOMIB
     Dosage: 3 MILLIGRAM
     Route: 048
     Dates: end: 202309
  3. POMALYST [Concomitant]
     Active Substance: POMALIDOMIDE
     Dosage: 3 MILLIGRAM
     Route: 048
  4. POMALYST [Concomitant]
     Active Substance: POMALIDOMIDE
     Dosage: UNK, QD
     Route: 065

REACTIONS (7)
  - Dyspnoea [Unknown]
  - Cardiac disorder [Unknown]
  - Cardiac failure congestive [Recovered/Resolved]
  - Paraesthesia [Unknown]
  - Burning sensation [Unknown]
  - Peripheral swelling [Unknown]
  - Product dose omission issue [Unknown]

NARRATIVE: CASE EVENT DATE: 20230508
